FAERS Safety Report 10043328 (Version 1)
Quarter: 2014Q1

REPORT INFORMATION
  Report Type: Spontaneous
  Country: NO (occurrence: NO)
  Receive Date: 20140328
  Receipt Date: 20140328
  Transmission Date: 20141002
  Serious: Yes (Death)
  Sender: FDA-Public Use
  Company Number: NO-ACCORD-022744

PATIENT
  Age: 53 Year
  Sex: Female

DRUGS (2)
  1. FLUOROURACIL [Suspect]
     Indication: COLON CANCER STAGE III
     Route: 041
     Dates: start: 20131120, end: 20140115
  2. OXALIPLATIN [Suspect]
     Indication: COLON CANCER STAGE III
     Route: 041
     Dates: start: 20131120, end: 20140115

REACTIONS (5)
  - Neutropenia [Fatal]
  - Disseminated intravascular coagulation [Fatal]
  - Septic shock [Fatal]
  - Thrombocytopenia [Fatal]
  - Multi-organ failure [Fatal]
